FAERS Safety Report 8212204-0 (Version None)
Quarter: 2012Q1

REPORT INFORMATION
  Report Type: 
  Country: None (occurrence: None)
  Receive Date: 20120315
  Receipt Date: 20120312
  Transmission Date: 20120608
  Serious: Yes (Other)
  Sender: FDA-Public Use
  Company Number: US-ACTELION-A-NJ2012-59665

PATIENT

DRUGS (4)
  1. CALCIUM CHANNEL BLOCKERS [Concomitant]
  2. TRACLEER [Suspect]
     Indication: PULMONARY ARTERIAL HYPERTENSION
     Dosage: 62.5 MG, BID
     Route: 048
     Dates: start: 20111202, end: 20111214
  3. PRADAXA [Concomitant]
  4. TRACLEER [Suspect]
     Dosage: 31.25 MG, BID
     Route: 048
     Dates: start: 20111215, end: 20120118

REACTIONS (4)
  - OEDEMA PERIPHERAL [None]
  - FATIGUE [None]
  - FEELING ABNORMAL [None]
  - DYSPNOEA [None]
